FAERS Safety Report 11281084 (Version 5)
Quarter: 2015Q3

REPORT INFORMATION
  Report Type: Spontaneous
  Country: JP (occurrence: JP)
  Receive Date: 20150717
  Receipt Date: 20150824
  Transmission Date: 20151125
  Serious: Yes (Hospitalization, Other)
  Sender: FDA-Public Use
  Company Number: JP-ASTRAZENECA-2015SE68226

PATIENT
  Age: 77 Year
  Sex: Female
  Weight: 47 kg

DRUGS (12)
  1. MUCOSAL [Concomitant]
     Indication: COUGH
     Route: 048
     Dates: start: 20150606
  2. LOXOPROFEN NA [Concomitant]
     Active Substance: LOXOPROFEN SODIUM
     Indication: CANCER PAIN
     Route: 048
     Dates: start: 20150519
  3. MOSAPRIDE CITRATE HYDRATE [Concomitant]
     Active Substance: MOSAPRIDE CITRATE DIHYDRATE
     Indication: GASTRIC ULCER
     Dosage: 3 DF, NUMBER OF SEPARATE DOSAGES UNKNOWN
     Route: 048
  4. NAUZELIN [Concomitant]
     Active Substance: DOMPERIDONE
     Indication: GASTRIC ULCER
     Dosage: 3 DF, NUMBER OF SEPARATE DOSAGES UNKNOWN
     Route: 048
  5. ZYRTEC [Concomitant]
     Active Substance: CETIRIZINE HYDROCHLORIDE
     Indication: RASH
     Route: 048
     Dates: start: 20150610, end: 20150630
  6. IRESSA [Suspect]
     Active Substance: GEFITINIB
     Indication: LUNG ADENOCARCINOMA
     Route: 048
     Dates: start: 20150710, end: 20150712
  7. METEBANYL [Concomitant]
     Indication: COUGH
     Route: 048
     Dates: start: 20150610
  8. AZEPTIN [Concomitant]
     Indication: RASH
     Route: 048
     Dates: start: 20150610, end: 20150630
  9. MINOMYCIN [Concomitant]
     Active Substance: MINOCYCLINE HYDROCHLORIDE
     Indication: RASH
     Route: 048
     Dates: start: 20150610, end: 20150630
  10. RANITIDINE [Concomitant]
     Active Substance: RANITIDINE\RANITIDINE HYDROCHLORIDE
     Indication: GASTRITIS
     Route: 048
     Dates: start: 20150519, end: 20150707
  11. IRESSA [Suspect]
     Active Substance: GEFITINIB
     Indication: LUNG ADENOCARCINOMA
     Route: 048
     Dates: start: 20150610, end: 20150630
  12. MEDICON [Concomitant]
     Active Substance: DEXTROMETHORPHAN HYDROBROMIDE
     Indication: COUGH
     Route: 048
     Dates: start: 20150606

REACTIONS (3)
  - Duodenal ulcer [Recovered/Resolved]
  - Pyrexia [Recovered/Resolved]
  - Pleural effusion [Recovered/Resolved]

NARRATIVE: CASE EVENT DATE: 20150622
